FAERS Safety Report 9111550 (Version 2)
Quarter: 2014Q1

REPORT INFORMATION
  Report Type: Spontaneous
  Country: US (occurrence: US)
  Receive Date: 20130219
  Receipt Date: 20140213
  Transmission Date: 20141002
  Serious: Yes (Other)
  Sender: FDA-Public Use
  Company Number: US-BRISTOL-MYERS SQUIBB COMPANY-17104704

PATIENT
  Age: 56 Year
  Sex: Female
  Weight: 58.96 kg

DRUGS (2)
  1. ORENCIA FOR INJ 250 MG/VIAL [Suspect]
     Indication: RHEUMATOID ARTHRITIS
     Dosage: LAST INF ON 21MAR13, 3RD INF
     Route: 042
     Dates: start: 20121023
  2. METHOTREXATE [Suspect]
     Dosage: 02MAR13

REACTIONS (15)
  - Pneumonia [Unknown]
  - Nasopharyngitis [Unknown]
  - Rheumatoid arthritis [Recovered/Resolved]
  - Oral herpes [Unknown]
  - Memory impairment [Unknown]
  - Visual acuity reduced [Unknown]
  - Depressed mood [Unknown]
  - Balance disorder [Unknown]
  - Drug ineffective [Unknown]
  - Decreased appetite [Unknown]
  - Weight decreased [Unknown]
  - Diarrhoea [Unknown]
  - Ear discomfort [Unknown]
  - Local swelling [Unknown]
  - Vomiting [Unknown]
